FAERS Safety Report 6072332-5 (Version None)
Quarter: 2009Q1

REPORT INFORMATION
  Report Type: 
  Country: None (occurrence: None)
  Receive Date: 20090210
  Receipt Date: 20090205
  Transmission Date: 20090719
  Serious: Yes (Death, Other)
  Sender: FDA-Public Use
  Company Number: DE-PURDUE-DEU_2009_0005006

PATIENT
  Age: 66 Year
  Sex: Female

DRUGS (2)
  1. PALLADON RETARD 8 MG [Suspect]
     Indication: CANCER PAIN
     Dosage: 8 MG, BID
     Route: 048
  2. PALLADONE [Suspect]
     Indication: CANCER PAIN
     Dosage: 4 MG, BID
     Route: 048

REACTIONS (3)
  - HAEMATEMESIS [None]
  - PNEUMONIA ASPIRATION [None]
  - UNRESPONSIVE TO STIMULI [None]
